FAERS Safety Report 17356804 (Version 1)
Quarter: 2020Q1

REPORT INFORMATION
  Report Type: Spontaneous
  Country: US (occurrence: US)
  Receive Date: 20200131
  Receipt Date: 20200131
  Transmission Date: 20200409
  Serious: No
  Sender: FDA-Public Use
  Company Number: US-PERRIGO-19US002781

PATIENT
  Age: 65 Year
  Sex: Male
  Weight: 71.66 kg

DRUGS (1)
  1. HALOBETASOL PROPIONATE. [Suspect]
     Active Substance: HALOBETASOL PROPIONATE
     Indication: PRODUCT USED FOR UNKNOWN INDICATION
     Dosage: 1 APPLICATION, UNKNOWN
     Route: 061
     Dates: start: 201902

REACTIONS (1)
  - Condition aggravated [Unknown]

NARRATIVE: CASE EVENT DATE: 201902
